FAERS Safety Report 7003967-0 (Version None)
Quarter: 2010Q3

REPORT INFORMATION
  Report Type: 
  Country: None (occurrence: None)
  Receive Date: 20100920
  Receipt Date: 20100124
  Transmission Date: 20110219
  Serious: No
  Sender: FDA-Public Use
  Company Number: US-WYE-H13142010

PATIENT
  Sex: Female

DRUGS (2)
  1. PRISTIQ [Suspect]
     Dosage: ^1/2 TABLET^
     Route: 048
     Dates: start: 20100114, end: 20100118
  2. PRISTIQ [Suspect]
     Route: 048
     Dates: start: 20100119

REACTIONS (4)
  - ANXIETY [None]
  - HEART RATE INCREASED [None]
  - INSOMNIA [None]
  - NAUSEA [None]
